FAERS Safety Report 7150561-7 (Version None)
Quarter: 2010Q4

REPORT INFORMATION
  Report Type: 
  Country: None (occurrence: None)
  Receive Date: 20101124
  Receipt Date: 20101115
  Transmission Date: 20110411
  Serious: Yes (Death, Hospitalization)
  Sender: FDA-Public Use
  Company Number: 2010AC000572

PATIENT
  Age: 80 Year
  Sex: Female
  Weight: 90.7194 kg

DRUGS (30)
  1. DIGOXIN [Suspect]
     Dosage: 0.125 MG;QD; PO
     Route: 048
     Dates: start: 20060430
  2. DIGOXIN [Suspect]
     Dosage: 0.25 MG; QD; PO
     Route: 048
     Dates: start: 20070716, end: 20080105
  3. CARBIDOPA [Concomitant]
  4. TOPROL-XL [Concomitant]
  5. WARFARIN SODIUM [Concomitant]
  6. LIPITOR [Concomitant]
  7. GEMFIBROZIL [Concomitant]
  8. FUROSEMIDE [Concomitant]
  9. ASPIRIN [Concomitant]
  10. PREDNISONE [Concomitant]
  11. LOVENOX [Concomitant]
  12. NITROGLYCERIN [Concomitant]
  13. ATROVENT [Concomitant]
  14. XOPENEX [Concomitant]
  15. LYRICA [Concomitant]
  16. DITROPAN [Concomitant]
  17. SINEMET [Concomitant]
  18. MIRALEX [Concomitant]
  19. GLIPIZIDE [Concomitant]
  20. IMDUR [Concomitant]
  21. LORATADINE [Concomitant]
  22. ZAROXOLINE [Concomitant]
  23. ELOCON [Concomitant]
  24. PROTINIX [Concomitant]
  25. SERTALINE [Concomitant]
  26. INSULIN [Concomitant]
  27. DOPAMINE [Concomitant]
  28. DILUADID [Concomitant]
  29. MORPHINE [Concomitant]
  30. ROCEPHEN [Concomitant]

REACTIONS (38)
  - ABDOMINAL PAIN [None]
  - ALANINE AMINOTRANSFERASE INCREASED [None]
  - AORTIC STENOSIS [None]
  - ASPARTATE AMINOTRANSFERASE INCREASED [None]
  - ASTHENIA [None]
  - ATRIAL FIBRILLATION [None]
  - CARDIAC FAILURE CONGESTIVE [None]
  - CARDIOACTIVE DRUG LEVEL ABOVE THERAPEUTIC [None]
  - CARDIOACTIVE DRUG LEVEL BELOW THERAPEUTIC [None]
  - CELLULITIS [None]
  - COAGULOPATHY [None]
  - COMA [None]
  - CONGESTIVE CARDIOMYOPATHY [None]
  - DEPRESSION [None]
  - DIABETIC NEUROPATHY [None]
  - DYSPNOEA [None]
  - EPISTAXIS [None]
  - GAIT DISTURBANCE [None]
  - GENERAL PHYSICAL HEALTH DETERIORATION [None]
  - HYPOTENSION [None]
  - INTERNATIONAL NORMALISED RATIO DECREASED [None]
  - INTERSTITIAL LUNG DISEASE [None]
  - LEFT VENTRICULAR HYPERTROPHY [None]
  - MITRAL VALVE INCOMPETENCE [None]
  - MULTI-ORGAN FAILURE [None]
  - MYOCARDIAL INFARCTION [None]
  - NEUROPATHY PERIPHERAL [None]
  - PULMONARY ARTERIAL PRESSURE INCREASED [None]
  - PULMONARY OEDEMA [None]
  - RENAL FAILURE CHRONIC [None]
  - SLEEP APNOEA SYNDROME [None]
  - SPINAL COLUMN STENOSIS [None]
  - THERAPEUTIC AGENT TOXICITY [None]
  - TREATMENT NONCOMPLIANCE [None]
  - TRICUSPID VALVE INCOMPETENCE [None]
  - TYPE 2 DIABETES MELLITUS [None]
  - UNRESPONSIVE TO STIMULI [None]
  - URINARY TRACT INFECTION [None]
